FAERS Safety Report 6195137-3 (Version None)
Quarter: 2009Q2

REPORT INFORMATION
  Report Type: 
  Country: None (occurrence: None)
  Receive Date: 20090519
  Receipt Date: 20090508
  Transmission Date: 20091009
  Serious: Yes (Other)
  Sender: FDA-Public Use
  Company Number: US-PFIZER INC-2009210796

PATIENT
  Sex: Female
  Weight: 68 kg

DRUGS (8)
  1. LIPITOR [Suspect]
     Indication: BLOOD CHOLESTEROL INCREASED
  2. CELEBREX [Suspect]
     Indication: OSTEOARTHRITIS
  3. CELEBREX [Suspect]
     Indication: INTERVERTEBRAL DISC DEGENERATION
  4. CELEBREX [Suspect]
     Indication: FIBROMYALGIA
  5. PREMPRO [Suspect]
     Indication: MENOPAUSE
  6. PREMARIN [Suspect]
  7. SYNTHROID [Concomitant]
     Dosage: UNK
  8. PREVACID [Concomitant]
     Dosage: 30 MG, 2X/DAY

REACTIONS (16)
  - ARTHRALGIA [None]
  - BREAST CYST [None]
  - CRYING [None]
  - DRY EYE [None]
  - FATIGUE [None]
  - FIBROMYALGIA [None]
  - GALLBLADDER DISORDER [None]
  - HIATUS HERNIA [None]
  - INTERVERTEBRAL DISC DEGENERATION [None]
  - MALAISE [None]
  - MEDICATION ERROR [None]
  - MENOPAUSE [None]
  - MENTAL IMPAIRMENT [None]
  - MUSCLE TIGHTNESS [None]
  - OSTEOARTHRITIS [None]
  - WEIGHT INCREASED [None]
